FAERS Safety Report 7121269-9 (Version None)
Quarter: 2010Q4

REPORT INFORMATION
  Report Type: 
  Country: None (occurrence: None)
  Receive Date: 20101122
  Receipt Date: 20101122
  Transmission Date: 20110411
  Serious: Yes (Death)
  Sender: FDA-Public Use
  Company Number: None

PATIENT
  Sex: Male
  Weight: 65.9 kg

DRUGS (1)
  1. CIMZIA [Suspect]
     Dosage: 200MG Q14D SQ
     Route: 058

REACTIONS (1)
  - DEATH [None]
